FAERS Safety Report 23217269 (Version 2)
Quarter: 2024Q2

REPORT INFORMATION
  Report Type: Report from Study
  Country: US (occurrence: US)
  Receive Date: 20231122
  Receipt Date: 20240515
  Transmission Date: 20240716
  Serious: Yes (Other)
  Sender: FDA-Public Use
  Company Number: US-TAKEDA-2023TUS083514

PATIENT
  Sex: Male
  Weight: 166 kg

DRUGS (4)
  1. LANADELUMAB [Suspect]
     Active Substance: LANADELUMAB
     Indication: Immune system disorder
     Dosage: 300 MILLIGRAM, Q2WEEKS
     Route: 058
     Dates: start: 20230809
  2. ADVAIR HFA [Concomitant]
     Active Substance: FLUTICASONE PROPIONATE\SALMETEROL XINAFOATE
     Dosage: UNK
     Route: 065
  3. ALBUTEROL SULFATE [Concomitant]
     Active Substance: ALBUTEROL SULFATE
     Dosage: UNK
     Route: 065
  4. ICATIBANT [Concomitant]
     Active Substance: ICATIBANT ACETATE

REACTIONS (6)
  - Type 2 diabetes mellitus [Unknown]
  - Drug hypersensitivity [Unknown]
  - Dermatitis contact [Unknown]
  - Seasonal allergy [Unknown]
  - Stress [Unknown]
  - Hereditary angioedema [Unknown]
